FAERS Safety Report 9030777 (Version 1)
Quarter: 2013Q1

REPORT INFORMATION
  Report Type: Spontaneous
  Country: BR (occurrence: BR)
  Receive Date: 20130123
  Receipt Date: 20130123
  Transmission Date: 20140127
  Serious: Yes (Hospitalization, Other)
  Sender: FDA-Public Use
  Company Number: PHHY2013BR005192

PATIENT
  Sex: Female

DRUGS (8)
  1. ONBREZ [Suspect]
     Indication: BRONCHIOLITIS
     Dosage: 150 UG, QD
  2. SERETIDE [Concomitant]
  3. UMBRELONE [Concomitant]
  4. CALTRATE [Concomitant]
  5. OMEPRAZOLE [Concomitant]
  6. CEWIN [Concomitant]
  7. B COMPLEX [Concomitant]
  8. NEXIUM [Concomitant]

REACTIONS (5)
  - Tuberculosis [Recovered/Resolved]
  - Bronchiolitis [Not Recovered/Not Resolved]
  - Condition aggravated [Not Recovered/Not Resolved]
  - Total lung capacity decreased [Not Recovered/Not Resolved]
  - Off label use [Unknown]
